FAERS Safety Report 24610100 (Version 5)
Quarter: 2025Q2

REPORT INFORMATION
  Report Type: Spontaneous
  Country: US (occurrence: US)
  Receive Date: 20241112
  Receipt Date: 20250618
  Transmission Date: 20250716
  Serious: No
  Sender: SANOFI AVENTIS
  Company Number: US-SA-2024SA323197

PATIENT
  Age: 61 Year
  Sex: Female

DRUGS (3)
  1. DUPIXENT [Suspect]
     Active Substance: DUPILUMAB
     Indication: Eosinophilic oesophagitis
     Dosage: 300 MG, QW
     Route: 058
     Dates: start: 20241020
  2. NYSTATIN [Suspect]
     Active Substance: NYSTATIN
     Indication: Candida infection
     Dates: start: 202503
  3. VITAMIN B3 [Concomitant]
     Active Substance: NIACIN

REACTIONS (10)
  - Dysphonia [Not Recovered/Not Resolved]
  - Candida infection [Not Recovered/Not Resolved]
  - Dysphagia [Unknown]
  - Abdominal discomfort [Not Recovered/Not Resolved]
  - Skin discolouration [Not Recovered/Not Resolved]
  - Pruritus [Not Recovered/Not Resolved]
  - Oropharyngeal pain [Not Recovered/Not Resolved]
  - Injection site swelling [Unknown]
  - Injection site bruising [Not Recovered/Not Resolved]
  - Injection site pain [Recovered/Resolved]

NARRATIVE: CASE EVENT DATE: 20241103
